FAERS Safety Report 20698909 (Version 3)
Quarter: 2022Q2

REPORT INFORMATION
  Report Type: Spontaneous
  Country: DK (occurrence: DK)
  Receive Date: 20220412
  Receipt Date: 20220425
  Transmission Date: 20220721
  Serious: Yes (Hospitalization, Other)
  Sender: FDA-Public Use
  Company Number: DK-VELOXIS PHARMACEUTICALS-2022VELDK-000237

PATIENT
  Age: 60 Year
  Sex: Female

DRUGS (4)
  1. TACROLIMUS [Suspect]
     Active Substance: TACROLIMUS
     Indication: Chronic graft versus host disease in skin
     Dosage: ON SEVERAL OCCASIONS, BLOOD TACROLIMUS CONCENTRATIONS HAD EXCEEDED UPPER THERAPEUTIC LEVELS. CONSEQU
  2. TACROLIMUS [Suspect]
     Active Substance: TACROLIMUS
     Indication: Chronic graft versus host disease in lung
     Dosage: UNK
  3. TACROLIMUS [Suspect]
     Active Substance: TACROLIMUS
     Indication: Prophylaxis against transplant rejection
  4. CLARITHROMYCIN [Concomitant]
     Active Substance: CLARITHROMYCIN
     Indication: Pneumonia
     Dosage: 1000 MILLIGRAM, QD

REACTIONS (11)
  - Aggression [Recovered/Resolved]
  - Neuropsychiatric symptoms [Recovered/Resolved]
  - Suicidal ideation [Recovered/Resolved]
  - Locked-in syndrome [Recovered/Resolved]
  - Amnesia [Recovered/Resolved]
  - Persecutory delusion [Recovered/Resolved]
  - Hypertension [Recovered/Resolved]
  - Tachycardia [Recovered/Resolved]
  - Immunosuppressant drug level increased [Unknown]
  - Haemoglobin decreased [Unknown]
  - Off label use [Unknown]

NARRATIVE: CASE EVENT DATE: 20210201
